FAERS Safety Report 8575528-3 (Version None)
Quarter: 2012Q3

REPORT INFORMATION
  Report Type: 
  Country: None (occurrence: None)
  Receive Date: 20120807
  Receipt Date: 20120802
  Transmission Date: 20120928
  Serious: Yes (Other)
  Sender: FDA-Public Use
  Company Number: PHEH2012US014245

PATIENT
  Sex: Female

DRUGS (2)
  1. DIOVAN HCT [Suspect]
     Indication: HYPERTENSION
     Dosage: 1 DF (160/12.5), DAILY
  2. LOSARTAN POTASSIUM [Suspect]

REACTIONS (4)
  - HYPOPHAGIA [None]
  - SOMNOLENCE [None]
  - CEREBROVASCULAR ACCIDENT [None]
  - ASTHENIA [None]
